FAERS Safety Report 21364683 (Version 1)
Quarter: 2022Q3

REPORT INFORMATION
  Report Type: Spontaneous
  Country: AR (occurrence: AR)
  Receive Date: 20220922
  Receipt Date: 20220922
  Transmission Date: 20221026
  Serious: Yes (Hospitalization, Other)
  Sender: FDA-Public Use
  Company Number: AR-MYLANLABS-2022M1095570

PATIENT
  Age: 90 Year
  Sex: Female

DRUGS (2)
  1. CLOZAPINE [Suspect]
     Active Substance: CLOZAPINE
     Indication: Schizophrenia
     Dosage: 300 MILLIGRAM (300 MG FOR MORE THAN 5 YEARS)
     Route: 065
     Dates: start: 19980609, end: 20220917
  2. QUETIAPINE [Concomitant]
     Active Substance: QUETIAPINE
     Dosage: 100 MILLIGRAM, PM (100 MG EVERY NIGHT)
     Route: 065

REACTIONS (9)
  - Asthenia [Unknown]
  - Melaena [Unknown]
  - Decubitus ulcer [Unknown]
  - Leukopenia [Unknown]
  - Neutropenia [Unknown]
  - Monocyte count increased [Unknown]
  - Red blood cell count decreased [Unknown]
  - Haemoglobin decreased [Unknown]
  - Platelet count decreased [Unknown]

NARRATIVE: CASE EVENT DATE: 20220901
